FAERS Safety Report 10204406 (Version 2)
Quarter: 2014Q2

REPORT INFORMATION
  Report Type: Spontaneous
  Country: US (occurrence: US)
  Receive Date: 20140529
  Receipt Date: 20140626
  Transmission Date: 20141212
  Serious: Yes (Hospitalization, Other)
  Sender: FDA-Public Use
  Company Number: US-GILEAD-2014-0103744

PATIENT
  Sex: Male

DRUGS (1)
  1. LETAIRIS [Suspect]
     Indication: PRODUCT USED FOR UNKNOWN INDICATION
     Dosage: 5 MG, QD
     Route: 065
     Dates: start: 20131030

REACTIONS (8)
  - Renal failure [Unknown]
  - Hepatic failure [Unknown]
  - Haemorrhage [Unknown]
  - Malaise [Unknown]
  - Oedema peripheral [Unknown]
  - Fluid retention [Unknown]
  - Dyspnoea [Unknown]
  - Dizziness [Unknown]
